FAERS Safety Report 7141395-8 (Version None)
Quarter: 2010Q4

REPORT INFORMATION
  Report Type: 
  Country: None (occurrence: None)
  Receive Date: 20101203
  Receipt Date: 20101203
  Transmission Date: 20110411
  Serious: Yes (Hospitalization, Other)
  Sender: FDA-Public Use
  Company Number: None

PATIENT
  Age: 85 Year
  Sex: Male
  Weight: 66.7 kg

DRUGS (1)
  1. ASPIRIN [Suspect]
     Indication: CORONARY ARTERY DISEASE
     Dosage: 81 MG EVERYDAY PO
     Route: 048
     Dates: start: 20100916, end: 20100925

REACTIONS (1)
  - GASTRIC HAEMORRHAGE [None]
